FAERS Safety Report 25837214 (Version 2)
Quarter: 2025Q4

REPORT INFORMATION
  Report Type: Spontaneous
  Country: EU (occurrence: EU)
  Receive Date: 20250923
  Receipt Date: 20251215
  Transmission Date: 20260118
  Serious: Yes (Hospitalization, Disabling, Other)
  Sender: PFIZER
  Company Number: EU-PFIZER INC-202500178540

PATIENT
  Age: 45 Year
  Sex: Female
  Weight: 63 kg

DRUGS (5)
  1. CIBINQO [Suspect]
     Active Substance: ABROCITINIB
     Indication: Dermatitis atopic
     Dosage: 200 MG
     Route: 048
     Dates: start: 20250801, end: 20250815
  2. CIBINQO [Suspect]
     Active Substance: ABROCITINIB
     Dosage: 100 MG
     Route: 048
     Dates: start: 20250901, end: 20250911
  3. PANTOPRAZOLE [Concomitant]
     Active Substance: PANTOPRAZOLE
     Dosage: 20 MG, 1X/DAY BEFORE BREAKFAST
  4. PREDNISONE [Concomitant]
     Active Substance: PREDNISONE
     Dosage: 6.25 MG, 1X/DAY AFTER BREAKFAST
  5. CETIRIZINE [Concomitant]
     Active Substance: CETIRIZINE HYDROCHLORIDE
     Dosage: 5 MG, 1X/DAY IN THE EVENING

REACTIONS (14)
  - Herpes ophthalmic [Recovered/Resolved with Sequelae]
  - Malaise [Not Recovered/Not Resolved]
  - Nausea [Not Recovered/Not Resolved]
  - Dizziness [Not Recovered/Not Resolved]
  - Fatigue [Unknown]
  - Myalgia [Unknown]
  - Hypotension [Unknown]
  - Hypoglycaemia [Unknown]
  - Blepharitis [Unknown]
  - Erythema of eyelid [Unknown]
  - Neuralgia [Unknown]
  - Photophobia [Unknown]
  - Visual acuity reduced [Unknown]
  - Drug ineffective [Not Recovered/Not Resolved]

NARRATIVE: CASE EVENT DATE: 20250803
